FAERS Safety Report 12715646 (Version 2)
Quarter: 2016Q3

REPORT INFORMATION
  Report Type: Report from Study
  Country: EC (occurrence: EC)
  Receive Date: 20160906
  Receipt Date: 20160912
  Transmission Date: 20161109
  Serious: No
  Sender: FDA-Public Use
  Company Number: EC-ROCHE-1803448

PATIENT
  Sex: Male

DRUGS (1)
  1. MABTHERA [Suspect]
     Active Substance: RITUXIMAB
     Indication: NON-HODGKIN^S LYMPHOMA
     Dosage: VIAL?LAST DOSE OF RITUXIMAB WAS RECEIVED ON 04/JUL/2016.
     Route: 042
     Dates: start: 20160302

REACTIONS (5)
  - Pain [Unknown]
  - Pyrexia [Unknown]
  - Chest pain [Unknown]
  - Hyperhidrosis [Unknown]
  - Cardiac disorder [Not Recovered/Not Resolved]
